FAERS Safety Report 17579682 (Version 1)
Quarter: 2020Q1

REPORT INFORMATION
  Report Type: Spontaneous
  Country: US (occurrence: US)
  Receive Date: 20200325
  Receipt Date: 20200325
  Transmission Date: 20200409
  Serious: No
  Sender: FDA-Public Use
  Company Number: US-SHIRE-US202011160

PATIENT
  Age: 8 Year
  Sex: Male
  Weight: 23.13 kg

DRUGS (3)
  1. DAYTRANA [Concomitant]
     Active Substance: METHYLPHENIDATE
     Indication: AUTISM SPECTRUM DISORDER
  2. VYVANSE [Suspect]
     Active Substance: LISDEXAMFETAMINE DIMESYLATE
     Indication: ATTENTION DEFICIT/HYPERACTIVITY DISORDER
     Dosage: 120 MILLIGRAM, UNKNOWN
     Route: 065
  3. DAYTRANA [Concomitant]
     Active Substance: METHYLPHENIDATE
     Indication: ATTENTION DEFICIT/HYPERACTIVITY DISORDER
     Dosage: 20 MILLIGRAM, UNKNOWN
     Route: 062
     Dates: start: 201912

REACTIONS (2)
  - Off label use [Unknown]
  - Increased appetite [Unknown]
